FAERS Safety Report 5370033-X (Version None)
Quarter: 2007Q2

REPORT INFORMATION
  Report Type: 
  Country: None (occurrence: None)
  Receive Date: 20070626
  Receipt Date: 20070615
  Transmission Date: 20071010
  Serious: Yes (Hospitalization)
  Sender: FDA-Public Use
  Company Number: GB-SOLVAY-00307032541

PATIENT
  Age: 809 Month
  Sex: Male

DRUGS (5)
  1. TESTOSTERONE [Suspect]
     Indication: ANDROGEN DEFICIENCY
     Dosage: DAILY DOSE: 5 GRAM(S)
     Route: 062
     Dates: start: 20060228, end: 20060515
  2. ENALAPRIL [Concomitant]
     Indication: HYPERTENSION
     Dosage: DAILY DOSE:  UNKNOWN
     Route: 065
  3. WARFARIN SODIUM [Concomitant]
     Indication: ATRIAL FIBRILLATION
     Dosage: DAILY DOSE:  UNKNOWN
     Route: 065
  4. CODEINE SUL TAB [Concomitant]
     Indication: IRRITABLE BOWEL SYNDROME
     Dosage: DAILY DOSE:  UNKNOWN
     Route: 065
  5. ALFUZOSIN [Concomitant]
     Indication: DYSURIA
     Dosage: DAILY DOSE:  UNKNOWN
     Route: 065

REACTIONS (3)
  - ESCHERICHIA URINARY TRACT INFECTION [None]
  - HAEMATOCRIT INCREASED [None]
  - PROSTATIC DISORDER [None]
